FAERS Safety Report 6072058-8 (Version None)
Quarter: 2009Q1

REPORT INFORMATION
  Report Type: 
  Country: None (occurrence: None)
  Receive Date: 20090205
  Receipt Date: 20090205
  Transmission Date: 20090719
  Serious: Yes (Hospitalization)
  Sender: FDA-Public Use
  Company Number: None

PATIENT
  Sex: Female
  Weight: 117 kg

DRUGS (13)
  1. BYETTA [Suspect]
     Indication: DIABETES MELLITUS
     Dosage: 10 MCG TWICE DAILY SQ
     Route: 058
     Dates: start: 20081201, end: 20090119
  2. ACTOS [Concomitant]
  3. ALPRAZOLAM [Concomitant]
  4. AMITRIPTYLINE HCL [Concomitant]
  5. ASPIRIN [Concomitant]
  6. AZMACORT [Concomitant]
  7. ALBUTEROL [Concomitant]
  8. PLAVIX [Concomitant]
  9. METOPROLOL TARTRATE [Concomitant]
  10. ENALAPRIL [Concomitant]
  11. GLYBURIDE [Concomitant]
  12. ISOSORBIDE MONONITRATE [Concomitant]
  13. LIPITOR [Concomitant]

REACTIONS (1)
  - PANCREATITIS [None]
